FAERS Safety Report 8817174 (Version 1)
Quarter: 2012Q4

REPORT INFORMATION
  Report Type: Spontaneous
  Country: US (occurrence: None)
  Receive Date: 20121003
  Receipt Date: 20121003
  Transmission Date: 20130627
  Serious: No
  Sender: FDA-Public Use
  Company Number: None

PATIENT
  Age: 5 Year
  Sex: Male
  Weight: 19.05 kg

DRUGS (2)
  1. FLUOCINOLONE [Suspect]
     Indication: ECZEMA
     Dosage: topical qd to bid
     Route: 061
     Dates: start: 20120907, end: 20121002
  2. LEVOCETERIZINE [Concomitant]

REACTIONS (4)
  - Product substitution issue [None]
  - Burning sensation [None]
  - Pruritus [None]
  - Eczema [None]
